FAERS Safety Report 13935710 (Version 1)
Quarter: 2017Q3

REPORT INFORMATION
  Report Type: Spontaneous
  Country: DE (occurrence: DE)
  Receive Date: 20170905
  Receipt Date: 20170905
  Transmission Date: 20171127
  Serious: Yes (Other)
  Sender: FDA-Public Use
  Company Number: DE-PFIZER INC-2017377155

PATIENT
  Age: 23 Year

DRUGS (1)
  1. ZIPRASIDONE HCL [Suspect]
     Active Substance: ZIPRASIDONE HYDROCHLORIDE
     Indication: DELUSION
     Dosage: UP TO 160 MG

REACTIONS (4)
  - Circulatory collapse [Unknown]
  - Headache [Unknown]
  - Rhinitis [Unknown]
  - Dizziness [Unknown]
